FAERS Safety Report 7170544-0 (Version None)
Quarter: 2010Q4

REPORT INFORMATION
  Report Type: 
  Country: None (occurrence: None)
  Receive Date: 20101217
  Receipt Date: 20101214
  Transmission Date: 20110411
  Serious: Yes (Other)
  Sender: FDA-Public Use
  Company Number: A0899879A

PATIENT
  Sex: Female

DRUGS (1)
  1. ALLI [Suspect]
     Route: 048

REACTIONS (6)
  - CHANGE OF BOWEL HABIT [None]
  - COLITIS [None]
  - COLONOSCOPY [None]
  - DIARRHOEA [None]
  - GALLBLADDER DISORDER [None]
  - MALAISE [None]
